FAERS Safety Report 8162288 (Version 3)
Quarter: 2013Q3

REPORT INFORMATION
  Report Type: Report from Study
  Country: BR (occurrence: BR)
  Receive Date: 20110929
  Receipt Date: 20130805
  Transmission Date: 20140515
  Serious: Yes (Hospitalization)
  Sender: FDA-Public Use
  Company Number: BR-UCBSA-041858

PATIENT
  Age: 54 Year
  Sex: Female
  Weight: 79.5 kg

DRUGS (1)
  1. CERTOLIZUMAB PEGOL [Suspect]
     Indication: CROHN^S DISEASE
     Dosage: NBR. DOSES RECEIVED:28
     Route: 058
     Dates: start: 20090929, end: 20110920

REACTIONS (2)
  - Urinary tract infection [Recovered/Resolved]
  - Anaemia [Recovered/Resolved]
